FAERS Safety Report 20599512 (Version 2)
Quarter: 2022Q2

REPORT INFORMATION
  Report Type: Report from Study
  Country: TR (occurrence: TR)
  Receive Date: 20220315
  Receipt Date: 20220502
  Transmission Date: 20220720
  Serious: Yes (Death, Hospitalization)
  Sender: FDA-Public Use
  Company Number: TR-BIOGEN-2022BI01105557

PATIENT
  Sex: Female

DRUGS (1)
  1. SPINRAZA [Suspect]
     Active Substance: NUSINERSEN
     Indication: Product used for unknown indication
     Dosage: SPINRAZA 2.4 MG/ML VIAL CONTAINING SOLUTION FOR INTRATHECAL INJECTION
     Route: 037
     Dates: end: 20211018

REACTIONS (6)
  - Respiratory arrest [Fatal]
  - Cardiac arrest [Fatal]
  - Sepsis [Unknown]
  - Pneumonia [Unknown]
  - Lung disorder [Unknown]
  - Feeding disorder [Unknown]

NARRATIVE: CASE EVENT DATE: 20220301
